FAERS Safety Report 8379541-0 (Version None)
Quarter: 2012Q2

REPORT INFORMATION
  Report Type: 
  Country: None (occurrence: None)
  Receive Date: 20120523
  Receipt Date: 20120523
  Transmission Date: 20120825
  Serious: Yes (Hospitalization, Other)
  Sender: FDA-Public Use
  Company Number: US-JNJFOC-20120410386

PATIENT
  Sex: Female

DRUGS (3)
  1. NUCYNTA ER [Suspect]
     Indication: MUSCULOSKELETAL PAIN
     Dosage: TWICE A DAY
     Route: 048
  2. DURAGESIC-100 [Suspect]
     Indication: MUSCULOSKELETAL PAIN
     Dosage: FOR MORE THAN 10 YEARS
     Route: 062
  3. NUCYNTA ER [Suspect]
     Indication: PAIN
     Dosage: TWICE A DAY
     Route: 048

REACTIONS (3)
  - CONFUSIONAL STATE [None]
  - CHEST PAIN [None]
  - WITHDRAWAL SYNDROME [None]
